FAERS Safety Report 6519860-3 (Version None)
Quarter: 2009Q4

REPORT INFORMATION
  Report Type: 
  Country: None (occurrence: None)
  Receive Date: 20091228
  Receipt Date: 20091228
  Transmission Date: 20100525
  Serious: Yes (Other)
  Sender: FDA-Public Use
  Company Number: None

PATIENT
  Age: 61 Year
  Sex: Female
  Weight: 58.9676 kg

DRUGS (2)
  1. ACTONEL [Suspect]
     Indication: OSTEOPOROSIS
     Dates: start: 20080320, end: 20081021
  2. RECLAST [Suspect]
     Indication: OSTEOPOROSIS
     Dates: start: 20081124, end: 20081124

REACTIONS (5)
  - CONTACT LENS INTOLERANCE [None]
  - DYSPEPSIA [None]
  - EYE INFLAMMATION [None]
  - OESOPHAGEAL DISORDER [None]
  - UVEITIS [None]
